FAERS Safety Report 6612761-1 (Version None)
Quarter: 2010Q1

REPORT INFORMATION
  Report Type: 
  Country: None (occurrence: None)
  Receive Date: 20100303
  Receipt Date: 20100302
  Transmission Date: 20100710
  Serious: Yes (Life-Threatening)
  Sender: FDA-Public Use
  Company Number: IT-SANOFI-AVENTIS-2010SA011739

PATIENT
  Age: 81 Year
  Sex: Male

DRUGS (1)
  1. ELOXATIN [Suspect]
     Route: 042
     Dates: start: 20091201, end: 20091201

REACTIONS (2)
  - BUNDLE BRANCH BLOCK LEFT [None]
  - SINUS RHYTHM [None]
